FAERS Safety Report 14901285 (Version 1)
Quarter: 2018Q2

REPORT INFORMATION
  Report Type: Spontaneous
  Country: TR (occurrence: TR)
  Receive Date: 20180516
  Receipt Date: 20180516
  Transmission Date: 20180711
  Serious: Yes (Hospitalization)
  Sender: FDA-Public Use
  Company Number: PHHY2018TR003942

PATIENT
  Age: 5 Year
  Sex: Female

DRUGS (1)
  1. KETOTIFEN [Suspect]
     Active Substance: KETOTIFEN
     Indication: SEDATION
     Dosage: 0.05 MG/KG, UNK
     Route: 065

REACTIONS (5)
  - Pain [Recovering/Resolving]
  - Neck deformity [Recovering/Resolving]
  - Product use in unapproved indication [Unknown]
  - Dystonia [Recovering/Resolving]
  - Muscle contractions involuntary [Recovering/Resolving]
